FAERS Safety Report 9354911 (Version 1)
Quarter: 2013Q2

REPORT INFORMATION
  Report Type: Spontaneous
  Country: US (occurrence: US)
  Receive Date: 20130619
  Receipt Date: 20130619
  Transmission Date: 20140414
  Serious: No
  Sender: FDA-Public Use
  Company Number: US-BIOGENIDEC-2013BI052135

PATIENT
  Sex: Female

DRUGS (4)
  1. AVONEX [Suspect]
     Indication: MULTIPLE SCLEROSIS
     Route: 030
     Dates: start: 20001105
  2. CLARITIN [Concomitant]
     Indication: PREMEDICATION
  3. ALEVE [Concomitant]
     Indication: PREMEDICATION
  4. PREDNISONE [Concomitant]
     Indication: PREMEDICATION
     Route: 048

REACTIONS (3)
  - Injection site bruising [Recovered/Resolved]
  - Amnesia [Not Recovered/Not Resolved]
  - Influenza like illness [Recovered/Resolved]
